FAERS Safety Report 7797385-5 (Version None)
Quarter: 2011Q4

REPORT INFORMATION
  Report Type: 
  Country: None (occurrence: None)
  Receive Date: 20111005
  Receipt Date: 20110929
  Transmission Date: 20120403
  Serious: Yes (Other)
  Sender: FDA-Public Use
  Company Number: JP-PFIZER INC-2011216062

PATIENT
  Age: 42 Year
  Sex: Female
  Weight: 57 kg

DRUGS (8)
  1. VARENICLINE TARTRATE [Suspect]
     Indication: SMOKING CESSATION THERAPY
     Dosage: 0.5 MG, 1X/DAY IN THE MORNING
     Route: 048
     Dates: start: 20110907, end: 20110909
  2. NITRAZEPAM [Concomitant]
     Indication: INSOMNIA
     Dosage: 5 MG, 1X/DAY
     Route: 048
     Dates: start: 20101014
  3. CINAL [Concomitant]
     Indication: CHLOASMA
     Dosage: 1 G, 3X/DAY
     Route: 048
     Dates: start: 20100506
  4. DEPROMEL [Concomitant]
     Indication: DEPRESSION
     Dosage: 25 MG, 1X/DAY
     Route: 048
     Dates: start: 20100506
  5. KETOPROFEN [Concomitant]
     Indication: MYALGIA
     Dosage: 1 DF, 1X/DAY
     Route: 061
     Dates: start: 20110419
  6. GAMMALON [Concomitant]
     Dosage: 2 MG/DAY
  7. ZOLPIDEM [Concomitant]
     Indication: INSOMNIA
     Dosage: 5 MG, 1X/DAY
     Route: 048
     Dates: start: 20100506
  8. VITAMEDIN CAPSULE [Concomitant]
     Indication: NEUROPATHY PERIPHERAL
     Dosage: 3 MG, 3X/DAY
     Route: 048
     Dates: start: 20100506

REACTIONS (5)
  - LIP SWELLING [None]
  - HYPERSENSITIVITY [None]
  - ORAL MUCOSA EROSION [None]
  - SCAB [None]
  - OEDEMA MOUTH [None]
